FAERS Safety Report 10241102 (Version 1)
Quarter: 2014Q2

REPORT INFORMATION
  Report Type: Spontaneous
  Country: NZ (occurrence: NZ)
  Receive Date: 20140617
  Receipt Date: 20140617
  Transmission Date: 20141212
  Serious: Yes (Other)
  Sender: FDA-Public Use
  Company Number: PHHY2014NZ073760

PATIENT
  Age: 9 Year
  Sex: Female

DRUGS (2)
  1. IMATINIB [Suspect]
     Indication: CHRONIC MYELOID LEUKAEMIA
     Dosage: 400 MG, PER DAY
  2. COTRIMOXAZOLE [Concomitant]
     Indication: PROPHYLAXIS

REACTIONS (4)
  - Pseudoporphyria [Recovered/Resolved]
  - Blister [Recovered/Resolved]
  - Skin erosion [Recovered/Resolved]
  - Skin fragility [Recovered/Resolved]
